FAERS Safety Report 4615339-4 (Version None)
Quarter: 2005Q1

REPORT INFORMATION
  Report Type: 
  Country: None (occurrence: None)
  Receive Date: 20050317
  Receipt Date: 20050304
  Transmission Date: 20050727
  Serious: Yes (Hospitalization)
  Sender: FDA-Public Use
  Company Number: 2005AC00177

PATIENT
  Sex: Male

DRUGS (4)
  1. MERONEM [Suspect]
     Indication: FEBRILE NEUTROPENIA
     Dates: start: 20041216, end: 20041217
  2. DEPAKENE [Suspect]
     Indication: EPILEPSY
     Dosage: 3500 MG DAILY
  3. DIPHANTOINE [Concomitant]
  4. VANCOMYCIN [Concomitant]

REACTIONS (3)
  - ANTICONVULSANT DRUG LEVEL BELOW THERAPEUTIC [None]
  - DRUG INTERACTION [None]
  - EPILEPSY [None]
